FAERS Safety Report 7549774-1 (Version None)
Quarter: 2011Q2

REPORT INFORMATION
  Report Type: 
  Country: None (occurrence: None)
  Receive Date: 20110615
  Receipt Date: 20110609
  Transmission Date: 20111010
  Serious: Yes (Life-Threatening)
  Sender: FDA-Public Use
  Company Number: JP-PFIZER INC-2011115690

PATIENT
  Age: 57 Year
  Sex: Male

DRUGS (8)
  1. ANPLAG [Concomitant]
     Dosage: 300 MG, 1X/DAY
     Route: 048
  2. LANSOPRAZOLE [Concomitant]
     Dosage: 15 MG, 1X/DAY
     Route: 048
  3. ZYVOX [Suspect]
     Indication: STAPHYLOCOCCAL INFECTION
     Dosage: 1200 MG, 1X/DAY
     Route: 041
     Dates: start: 20110517, end: 20110517
  4. VANCOMYCIN HCL [Suspect]
     Indication: STAPHYLOCOCCAL INFECTION
     Dosage: 2 G, 1X/DAY
     Route: 042
     Dates: start: 20110517, end: 20110517
  5. ALLOPURINOL [Concomitant]
     Dosage: 100 MG, 1X/DAY
     Route: 048
  6. LEVOTHYROXINE SODIUM [Concomitant]
     Dosage: 25 UG, 1X/DAY
     Route: 048
  7. CALCIUM CARBONATE [Concomitant]
     Dosage: 3000 MG, 1X/DAY
     Route: 048
  8. TALION [Concomitant]
     Dosage: 10 MG, 1X/DAY
     Route: 048

REACTIONS (2)
  - CONJUNCTIVAL OEDEMA [None]
  - DYSPNOEA [None]
